FAERS Safety Report 15058068 (Version 2)
Quarter: 2018Q3

REPORT INFORMATION
  Report Type: Spontaneous
  Country: US (occurrence: US)
  Receive Date: 20180625
  Receipt Date: 20180907
  Transmission Date: 20181010
  Serious: Yes (Other)
  Sender: FDA-Public Use
  Company Number: US-PFIZER INC-2018255342

PATIENT
  Age: 63 Year
  Sex: Female

DRUGS (2)
  1. XELJANZ XR [Suspect]
     Active Substance: TOFACITINIB CITRATE
     Dosage: 11 MG, UNK
     Dates: start: 20180531
  2. XELJANZ XR [Suspect]
     Active Substance: TOFACITINIB CITRATE
     Dosage: 11 MG, UNK, [6 WEEK(S)]

REACTIONS (4)
  - Drug ineffective [Unknown]
  - Drug dose omission [Unknown]
  - Basal cell carcinoma [Unknown]
  - Impaired healing [Unknown]

NARRATIVE: CASE EVENT DATE: 20180621
